FAERS Safety Report 8583030-8 (Version None)
Quarter: 2012Q3

REPORT INFORMATION
  Report Type: 
  Country: None (occurrence: None)
  Receive Date: 20120809
  Receipt Date: 20120525
  Transmission Date: 20120928
  Serious: Yes (Other)
  Sender: FDA-Public Use
  Company Number: IT-ALEXION PHARMACEUTICALS INC.-A201201053

PATIENT
  Sex: Female

DRUGS (2)
  1. SOLIRIS [Suspect]
     Dosage: 900 MG, Q2W
     Route: 042
     Dates: start: 20050101
  2. SOLIRIS [Suspect]
     Indication: PAROXYSMAL NOCTURNAL HAEMOGLOBINURIA
     Dosage: 600 MG, QW X4 WKS
     Route: 042
     Dates: start: 20050901

REACTIONS (4)
  - EXTRAVASCULAR HAEMOLYSIS [None]
  - SPLENECTOMY [None]
  - HYPERBILIRUBINAEMIA [None]
  - SPLENOMEGALY [None]
